FAERS Safety Report 9225210 (Version 1)
Quarter: 2013Q2

REPORT INFORMATION
  Report Type: Spontaneous
  Country: FR (occurrence: AU)
  Receive Date: 20130411
  Receipt Date: 20130411
  Transmission Date: 20140414
  Serious: Yes (Other)
  Sender: FDA-Public Use
  Company Number: AU-FRI-1000044182

PATIENT
  Age: 56 Year
  Sex: Female

DRUGS (3)
  1. CAMPRAL [Suspect]
     Indication: ALCOHOLISM
     Dosage: 1332 MG
     Route: 048
     Dates: start: 20130219, end: 20130326
  2. ALODORM [Concomitant]
  3. CIPRAMIL [Concomitant]

REACTIONS (9)
  - Convulsion [Recovered/Resolved]
  - Syncope [Recovered/Resolved]
  - Heart rate increased [Recovered/Resolved]
  - Weight decreased [Recovered/Resolved]
  - Muscle atrophy [Recovered/Resolved]
  - Palpitations [Recovering/Resolving]
  - Diarrhoea [Recovered/Resolved]
  - Vomiting [Recovered/Resolved]
  - Product taste abnormal [Recovering/Resolving]
